FAERS Safety Report 11247608 (Version 2)
Quarter: 2015Q3

REPORT INFORMATION
  Report Type: Report from Study
  Country: AU (occurrence: None)
  Receive Date: 20150706
  Receipt Date: 20150717
  Transmission Date: 20151125
  Serious: Yes (Hospitalization, Other)
  Sender: FDA-Public Use
  Company Number: 2015-11636

PATIENT
  Sex: Female

DRUGS (12)
  1. LYRICA [Concomitant]
     Active Substance: PREGABALIN
  2. IMDUR (ISOSORBIDE MONONITRATE) [Concomitant]
  3. ALPRAZOLAM. [Concomitant]
     Active Substance: ALPRAZOLAM
  4. TEMAZEPAM. [Concomitant]
     Active Substance: TEMAZEPAM
  5. PANADOL OSTEO (PARACETAMOL) [Concomitant]
  6. COVERSYL (PERINDOPRIL ERBUMINE) [Concomitant]
     Active Substance: PERINDOPRIL
  7. PROBITOR (OMEPRAZOLE) [Concomitant]
  8. ALPRIM (TRIMETHOPRIM) [Concomitant]
  9. EFEXOR (VENLAFAXINE HYDROCHLORIDE) [Concomitant]
  10. EYLEA [Suspect]
     Active Substance: AFLIBERCEPT
     Indication: DIABETIC RETINAL OEDEMA
     Dosage: Q4WK
     Route: 031
     Dates: start: 20150310
  11. METFORMIN [Concomitant]
     Active Substance: METFORMIN HYDROCHLORIDE
  12. ISOPHANE INSULIN (ISOPHANE INSULIN) [Concomitant]

REACTIONS (3)
  - Angina pectoris [None]
  - Sensory loss [None]
  - Paraesthesia [None]
